FAERS Safety Report 6855743-7 (Version None)
Quarter: 2010Q3

REPORT INFORMATION
  Report Type: 
  Country: None (occurrence: None)
  Receive Date: 20100719
  Receipt Date: 20100524
  Transmission Date: 20110219
  Serious: No
  Sender: FDA-Public Use
  Company Number: US-KINGPHARMUSA00001-K201000647

PATIENT
  Age: 67 Year
  Sex: Female
  Weight: 49.433 kg

DRUGS (4)
  1. LEVOXYL [Suspect]
     Indication: POST PROCEDURAL HYPOTHYROIDISM
     Dosage: 75 MCG, QD
     Route: 048
     Dates: start: 19820101, end: 20100501
  2. LEVOXYL [Suspect]
     Dosage: 112.5 MCG, QD
     Route: 048
     Dates: start: 20100501
  3. ANTI-ASTHMATICS [Concomitant]
     Indication: ASTHMA
     Dosage: UNK
  4. ANTIBIOTICS [Concomitant]
     Indication: BRONCHITIS
     Dosage: UNK
     Dates: end: 20100524

REACTIONS (8)
  - BRONCHITIS [None]
  - COUGH [None]
  - INSOMNIA [None]
  - INTENTIONAL DRUG MISUSE [None]
  - SLEEP DISORDER [None]
  - TREMOR [None]
  - URINARY INCONTINENCE [None]
  - WEIGHT DECREASED [None]
